FAERS Safety Report 6721536-4 (Version None)
Quarter: 2010Q2

REPORT INFORMATION
  Report Type: 
  Country: None (occurrence: None)
  Receive Date: 20100510
  Receipt Date: 20100427
  Transmission Date: 20101027
  Serious: Yes (Hospitalization)
  Sender: FDA-Public Use
  Company Number: 8027955

PATIENT
  Sex: Male
  Weight: 64 kg

DRUGS (7)
  1. CERTOLIZUMAB PEGOL (CDP870) (CELLTECH PHARMACEUTICALS, LTD) [Suspect]
     Indication: CROHN'S DISEASE
     Dosage: (400 MG 1X/2 WEEKS, SUBCUTANEOUS, (400 MG, ONCE MONTHLY, SUBCUTANEOUS
     Route: 058
     Dates: start: 20070703
  2. IMURAN [Concomitant]
  3. NEXIUM [Concomitant]
  4. METOCLOPRAMIDE [Concomitant]
  5. FENTANYL [Concomitant]
  6. MORPHINE [Concomitant]
  7. ZOPICLONE [Concomitant]

REACTIONS (1)
  - SEPSIS [None]
